FAERS Safety Report 6232597-3 (Version None)
Quarter: 2009Q2

REPORT INFORMATION
  Report Type: 
  Country: None (occurrence: None)
  Receive Date: 20090617
  Receipt Date: 20071008
  Transmission Date: 20091009
  Serious: Yes (Other)
  Sender: FDA-Public Use
  Company Number: US-ASTRAZENECA-2007UW09095

PATIENT
  Age: 44 Year
  Sex: Male
  Weight: 102.5 kg

DRUGS (31)
  1. SEROQUEL [Suspect]
     Indication: DEPRESSION
     Route: 048
     Dates: start: 20030101
  2. SEROQUEL [Suspect]
     Dosage: 25-600 MG
     Route: 048
     Dates: start: 20030509
  3. EFFEXOR [Concomitant]
  4. HYDROCODONE BITARTRATE + ACETAMINOPHEN [Concomitant]
     Indication: PAIN
     Dosage: 5/500, 7/750
     Route: 048
     Dates: start: 20000510
  5. MAGNESIUM OXIDE [Concomitant]
     Dosage: 400-800 MG, FOUR TIMES A DAY
     Route: 048
     Dates: start: 20040206
  6. PAXIL [Concomitant]
     Dosage: 40 -60 MG
     Dates: start: 20001128
  7. METFORMIN HCL [Concomitant]
     Dosage: 500-1500 MG
     Route: 048
     Dates: start: 20001013
  8. RISPERDAL [Concomitant]
     Dosage: 0.5-4 MG
     Dates: start: 20001013
  9. LIPITOR [Concomitant]
     Dosage: 10-20 MG
     Dates: start: 19990712
  10. KLONOPIN [Concomitant]
     Dosage: 0.5-3 MG
     Route: 048
     Dates: start: 20000518
  11. ACCUPRIL [Concomitant]
     Dosage: 20-40 MG
     Route: 048
     Dates: start: 19990712
  12. NEURONTIN [Concomitant]
     Indication: PAIN IN EXTREMITY
     Dosage: 100-600MG, TWO TIMES A DAY
     Route: 048
     Dates: start: 20030509
  13. HYDROCHLOROTHIAZIDE [Concomitant]
     Dosage: 12.5-25 MG
     Route: 048
     Dates: start: 20021016
  14. OXYCODONE AND ACETAMINOPHEN [Concomitant]
     Dosage: 5/325, 7.5/500
     Dates: start: 20030910
  15. OXYCONTIN [Concomitant]
     Indication: BREAKTHROUGH PAIN
     Dosage: 5-80 MG
     Route: 048
     Dates: start: 20030923
  16. TROPROL XL [Concomitant]
     Dosage: 25-160 MG
     Route: 048
     Dates: start: 19990712
  17. IMDUR [Concomitant]
     Dosage: 30-60 MG
     Dates: start: 19990712
  18. DURAGESIC-100 [Concomitant]
     Indication: PAIN
     Dosage: 50-100 UG
     Dates: start: 20031226
  19. DILAUDID [Concomitant]
     Indication: BREAKTHROUGH PAIN
     Dosage: 2-4 MG
     Route: 048
     Dates: start: 20040206
  20. CAPTOPRIL [Concomitant]
     Route: 048
     Dates: start: 20040223
  21. COMBIVENT [Concomitant]
     Dosage: 2 PUFFS,THREE TIMES A DAY
     Dates: start: 20040206
  22. FOLIC ACID [Concomitant]
     Route: 048
     Dates: start: 20040223
  23. THIAMINE HCL [Concomitant]
     Route: 048
     Dates: start: 20031226
  24. IBUPROFEN [Concomitant]
     Dosage: 600-800 MG
     Route: 048
     Dates: start: 20021203
  25. VALIUM [Concomitant]
     Route: 048
     Dates: start: 20040902
  26. ASPIRIN [Concomitant]
     Dosage: 81-325 MG
     Route: 048
     Dates: start: 20040408
  27. GLUCOTROL XL [Concomitant]
     Route: 048
     Dates: start: 20040206, end: 20060101
  28. HUMULIN 70/30 [Concomitant]
     Dosage: 40 UNITS EVERY MORNING  AND 55 UNITS EVERY EVENING
     Dates: start: 20060101
  29. AMLODIPINE [Concomitant]
     Dosage: 2.5-5 MG
     Route: 048
     Dates: start: 20030721
  30. VITAMIN B1 TAB [Concomitant]
     Dates: start: 20080208
  31. DOCUSATE SODIUM [Concomitant]
     Dates: start: 20030910

REACTIONS (4)
  - DIABETES MELLITUS [None]
  - DIABETES MELLITUS INADEQUATE CONTROL [None]
  - DIABETIC NEUROPATHY [None]
  - TYPE 2 DIABETES MELLITUS [None]
